FAERS Safety Report 5196270-5 (Version None)
Quarter: 2007Q1

REPORT INFORMATION
  Report Type: 
  Country: None (occurrence: None)
  Receive Date: 20070102
  Receipt Date: 20061221
  Transmission Date: 20070707
  Serious: Yes (Other)
  Sender: FDA-Public Use
  Company Number: DE-PFIZER INC-2006145267

PATIENT
  Sex: Male
  Weight: 85 kg

DRUGS (5)
  1. SU-011,248 [Suspect]
     Indication: METASTATIC RENAL CELL CARCINOMA
     Route: 048
     Dates: start: 20061026, end: 20061123
  2. ENALAPRIL MALEATE [Concomitant]
     Route: 048
  3. AMLODIPINE [Concomitant]
     Route: 048
     Dates: start: 20060202
  4. ESIDRIX [Concomitant]
     Route: 048
     Dates: start: 20060202
  5. LEVOTHYROXINE SODIUM [Concomitant]
     Route: 048
     Dates: start: 20061128

REACTIONS (3)
  - HYPOTHYROIDISM [None]
  - REFUSAL OF TREATMENT BY PATIENT [None]
  - RENAL FAILURE ACUTE [None]
